FAERS Safety Report 16668982 (Version 1)
Quarter: 2019Q3

REPORT INFORMATION
  Report Type: Report from Study
  Country: TW (occurrence: TW)
  Receive Date: 20190805
  Receipt Date: 20190805
  Transmission Date: 20191004
  Serious: Yes (Hospitalization, Other)
  Sender: FDA-Public Use
  Company Number: TW-GILEAD-2019-0420802

PATIENT
  Age: 64 Year
  Sex: Male
  Weight: 80 kg

DRUGS (7)
  1. METHYCOBAL [Concomitant]
     Active Substance: METHYLCOBALAMIN
  2. RANITIDINE. [Concomitant]
     Active Substance: RANITIDINE
  3. IMIDAPRIL [Concomitant]
     Active Substance: IMIDAPRIL
  4. SOFOSBUVIR W/VELPATASVIR [Suspect]
     Active Substance: SOFOSBUVIR\VELPATASVIR
     Indication: HEPATITIS C
     Dosage: 1 DOSAGE FORM, QD
     Route: 048
     Dates: start: 20190625
  5. CONCOR [Concomitant]
     Active Substance: BISOPROLOL FUMARATE
  6. CLOPIDOGREL [Concomitant]
     Active Substance: CLOPIDOGREL BISULFATE
  7. HOMOCLOMIN [HOMOCHLORCYCLIZINE] [Concomitant]

REACTIONS (1)
  - Pneumonia [Recovered/Resolved]

NARRATIVE: CASE EVENT DATE: 20190721
